FAERS Safety Report 6032288-8 (Version None)
Quarter: 2009Q1

REPORT INFORMATION
  Report Type: 
  Country: None (occurrence: None)
  Receive Date: 20090107
  Receipt Date: 20081223
  Transmission Date: 20090719
  Serious: Yes (Other)
  Sender: FDA-Public Use
  Company Number: CHPA2008US23327

PATIENT

DRUGS (1)
  1. TRIAMINIC NIGHT TIME COLD + COUGH (NCH0 (DIPHENHYDRAMINE, PHENYLEPHRIN [Suspect]
     Dosage: ONCE/SINGLE, ORAL
     Route: 048
     Dates: start: 20081222, end: 20081222

REACTIONS (2)
  - ACCIDENTAL DRUG INTAKE BY CHILD [None]
  - PYREXIA [None]
